FAERS Safety Report 6288536-2 (Version None)
Quarter: 2009Q3

REPORT INFORMATION
  Report Type: 
  Country: None (occurrence: None)
  Receive Date: 20090729
  Receipt Date: 20070531
  Transmission Date: 20100115
  Serious: Yes (Other)
  Sender: FDA-Public Use
  Company Number: US-ASTRAZENECA-2006UW11908

PATIENT
  Age: 10567 Day
  Sex: Female
  Weight: 93 kg

DRUGS (19)
  1. SEROQUEL [Suspect]
     Indication: ANGER
     Dosage: 100-300 MG
     Route: 048
     Dates: start: 20030429
  2. SEROQUEL [Suspect]
     Indication: DEPRESSION
     Dosage: 100-300 MG
     Route: 048
     Dates: start: 20030429
  3. SEROQUEL [Suspect]
     Indication: SCHIZOPHRENIA
     Dosage: 100-300 MG
     Route: 048
     Dates: start: 20030429
  4. SEROQUEL [Suspect]
     Dosage: 100MG - 300MG
     Route: 048
     Dates: start: 20030801, end: 20071201
  5. SEROQUEL [Suspect]
     Dosage: 100MG - 300MG
     Route: 048
     Dates: start: 20030801, end: 20071201
  6. SEROQUEL [Suspect]
     Dosage: 100MG - 300MG
     Route: 048
     Dates: start: 20030801, end: 20071201
  7. ABILIFY [Concomitant]
     Dates: start: 20051101
  8. CLOZARIL [Concomitant]
     Dosage: 40 MG
     Dates: start: 20020401
  9. GEODON [Concomitant]
     Indication: PSYCHOTIC DISORDER
     Dosage: 80-160 MG
     Dates: start: 20020416
  10. GEODON [Concomitant]
     Dosage: 40 MG
     Dates: start: 20020401
  11. RISPERDAL [Concomitant]
     Indication: PSYCHOTIC DISORDER
     Dosage: 3 MG
     Dates: start: 20020719
  12. RISPERDAL [Concomitant]
     Dosage: 0.5-4 MG
     Route: 048
     Dates: start: 20020425
  13. ZYPREXA [Concomitant]
     Dosage: 7.5MG - 20MG
     Dates: start: 19990101, end: 20020401
  14. TOPAMAX [Concomitant]
     Dates: start: 20021126
  15. LITHIUM CARBONATE [Concomitant]
     Dosage: 600-1200 MG
     Route: 048
     Dates: start: 20050714
  16. LISINOPRIL AND HYDROCHLOROTHIAZIDE [Concomitant]
     Dosage: 10-12.5 MG, DISPENSED
     Dates: start: 20050714
  17. ZOCOR [Concomitant]
     Dosage: 40 MG,DISPENSED
     Dates: start: 20050714
  18. KLONOPIN [Concomitant]
     Dosage: 1 MG,DISPENSED
     Dates: start: 20060406
  19. ACTOS [Concomitant]
     Dates: start: 20050714

REACTIONS (14)
  - ACNE [None]
  - CARDIAC DISORDER [None]
  - CHEST PAIN [None]
  - CORONARY ARTERY DISEASE [None]
  - DIABETES MELLITUS [None]
  - DRUG ERUPTION [None]
  - ISCHAEMIA [None]
  - MITRAL VALVE PROLAPSE [None]
  - OVERWEIGHT [None]
  - PYREXIA [None]
  - RASH [None]
  - SLEEP APNOEA SYNDROME [None]
  - SLEEP DISORDER [None]
  - WEIGHT INCREASED [None]
